FAERS Safety Report 4356177-X (Version None)
Quarter: 2004Q2

REPORT INFORMATION
  Report Type: 
  Country: None (occurrence: None)
  Receive Date: 20040506
  Receipt Date: 20040423
  Transmission Date: 20050107
  Serious: Yes (Hospitalization, Other)
  Sender: FDA-Public Use
  Company Number: JP-JNJFOC-20040405442

PATIENT
  Age: 43 Year
  Sex: Male
  Weight: 53.6 kg

DRUGS (15)
  1. REMICADE [Suspect]
     Indication: ANAL FISTULA
     Dosage: 5 MG/KG, 1 IN 1 AS NECESSARY, INTRAVENOUS DRIP
     Route: 041
     Dates: start: 20040130, end: 20040130
  2. REMICADE [Suspect]
     Indication: CROHN'S DISEASE
     Dosage: 5 MG/KG, 1 IN 1 AS NECESSARY, INTRAVENOUS DRIP
     Route: 041
     Dates: start: 20040130, end: 20040130
  3. REMICADE [Suspect]
     Indication: ANAL FISTULA
     Dosage: 5 MG/KG, 1 IN 1 AS NECESSARY, INTRAVENOUS DRIP
     Route: 041
     Dates: start: 20040213, end: 20040213
  4. REMICADE [Suspect]
     Indication: CROHN'S DISEASE
     Dosage: 5 MG/KG, 1 IN 1 AS NECESSARY, INTRAVENOUS DRIP
     Route: 041
     Dates: start: 20040213, end: 20040213
  5. PREDNISOLONE [Concomitant]
  6. SOLU-CORTEF [Concomitant]
  7. PENTASA [Concomitant]
  8. ELENTAL (ELENTAL) [Concomitant]
  9. BERIZYMN (BERYZYM) [Concomitant]
  10. URSOSAN (URSODEOXYCHOLIC ACID) [Concomitant]
  11. PROMAC (NITROFURANTOIN) [Concomitant]
  12. PROTECADIN (PROTECTON) [Concomitant]
  13. AMOBAN (ZOPICLONE) [Concomitant]
  14. ENTERAL NUTRITION (SOLUTIONS FOR PARENTEAL NUTRITION) [Concomitant]
  15. AZATHIOPRINE [Suspect]
     Indication: CROHN'S DISEASE
     Dosage: 50 MG

REACTIONS (3)
  - MALAISE [None]
  - PNEUMONIA [None]
  - SWELLING FACE [None]
